FAERS Safety Report 22376938 (Version 1)
Quarter: 2023Q2

REPORT INFORMATION
  Report Type: Spontaneous
  Country: GB (occurrence: GB)
  Receive Date: 20230529
  Receipt Date: 20230529
  Transmission Date: 20230722
  Serious: Yes (Other)
  Sender: FDA-Public Use
  Company Number: None

PATIENT
  Age: 83 Year
  Sex: Male
  Weight: 72 kg

DRUGS (8)
  1. OMEPRAZOLE [Suspect]
     Active Substance: OMEPRAZOLE
     Indication: Ill-defined disorder
     Dosage: UNK
     Route: 065
     Dates: start: 20230508
  2. OMEPRAZOLE [Suspect]
     Active Substance: OMEPRAZOLE
     Dosage: 1 DOSAGE FORM, QD (TO PROTECT YOUR STOMACH FROM ASP)
     Route: 065
     Dates: start: 20230512
  3. FLUTICASONE PROPIONATE\SALMETEROL XINAFOATE [Concomitant]
     Active Substance: FLUTICASONE PROPIONATE\SALMETEROL XINAFOATE
     Indication: Ill-defined disorder
     Dosage: 1 DOSAGE FORM, BID
     Dates: start: 20220823
  4. AMLODIPINE [Concomitant]
     Active Substance: AMLODIPINE BESYLATE
     Indication: Ill-defined disorder
     Dosage: 0.5 DOSAGE FORM, QD
     Route: 065
     Dates: start: 20230203
  5. ASPIRIN [Concomitant]
     Active Substance: ASPIRIN
     Indication: Ill-defined disorder
     Dosage: 1 DOSAGE FORM, QD (WITH FOOD)
     Route: 065
     Dates: start: 20220823
  6. ATORVASTATIN [Concomitant]
     Active Substance: ATORVASTATIN
     Indication: Ill-defined disorder
     Dosage: 1 DOSAGE FORM (AT NIGHT FOR CHOLESTEROL)
     Route: 065
     Dates: start: 20220823
  7. LINACLOTIDE [Concomitant]
     Active Substance: LINACLOTIDE
     Indication: Ill-defined disorder
     Dosage: 1 DOSAGE FORM, QD (OR EVERY 48 HOURS)
     Route: 065
     Dates: start: 20220823
  8. INDOMETHACIN [Concomitant]
     Active Substance: INDOMETHACIN
     Indication: Ill-defined disorder
     Dosage: 2 DOSAGE FORM, QD (FOR BACK)
     Route: 065
     Dates: start: 20220823

REACTIONS (1)
  - Adverse drug reaction [Recovered/Resolved]

NARRATIVE: CASE EVENT DATE: 20230515
